FAERS Safety Report 10833604 (Version 7)
Quarter: 2015Q2

REPORT INFORMATION
  Report Type: Spontaneous
  Country: JP (occurrence: JP)
  Receive Date: 20150219
  Receipt Date: 20150422
  Transmission Date: 20150821
  Serious: Yes (Death, Life-Threatening, Hospitalization)
  Sender: FDA-Public Use
  Company Number: JP-B.I. PHARMACEUTICALS,INC./RIDGEFIELD-2015-BI-08808NB

PATIENT
  Age: 80 Year
  Sex: Male

DRUGS (1)
  1. PRAZAXA [Suspect]
     Active Substance: DABIGATRAN ETEXILATE MESYLATE
     Indication: PRODUCT USED FOR UNKNOWN INDICATION
     Route: 048
     Dates: end: 20150211

REACTIONS (8)
  - Cardiac arrest [Fatal]
  - Gastrointestinal haemorrhage [Unknown]
  - Respiratory arrest [Fatal]
  - Mallory-Weiss syndrome [Unknown]
  - Aortic aneurysm rupture [Fatal]
  - Loss of consciousness [Unknown]
  - Aorto-oesophageal fistula [Fatal]
  - Exsanguination [Fatal]

NARRATIVE: CASE EVENT DATE: 20150211
